FAERS Safety Report 19913761 (Version 2)
Quarter: 2022Q1

REPORT INFORMATION
  Report Type: Report from Study
  Country: US (occurrence: US)
  Receive Date: 20211004
  Receipt Date: 20220118
  Transmission Date: 20220424
  Serious: Yes (Other)
  Sender: FDA-Public Use
  Company Number: US-OTSUKA-2021_026085

PATIENT
  Sex: Female
  Weight: 72.6 kg

DRUGS (4)
  1. TOLVAPTAN [Suspect]
     Active Substance: TOLVAPTAN
     Indication: Congenital cystic kidney disease
     Dosage: 60 MG
     Route: 065
     Dates: start: 20190405
  2. TOLVAPTAN [Suspect]
     Active Substance: TOLVAPTAN
     Dosage: 30 MG
     Route: 065
     Dates: start: 20190405
  3. TOLVAPTAN [Suspect]
     Active Substance: TOLVAPTAN
     Dosage: 45 MG
     Route: 065
     Dates: start: 2019, end: 202108
  4. TOLVAPTAN [Suspect]
     Active Substance: TOLVAPTAN
     Dosage: 15 MG
     Route: 065
     Dates: start: 2019, end: 202108

REACTIONS (10)
  - Foot fracture [Not Recovered/Not Resolved]
  - Syncope [Not Recovered/Not Resolved]
  - Limb discomfort [Not Recovered/Not Resolved]
  - Mobility decreased [Unknown]
  - Head discomfort [Unknown]
  - Muscular weakness [Unknown]
  - Glomerular filtration rate abnormal [Unknown]
  - Blood pressure decreased [Unknown]
  - Muscle spasms [Not Recovered/Not Resolved]
  - Dizziness [Unknown]

NARRATIVE: CASE EVENT DATE: 20210101
